FAERS Safety Report 5763379-4 (Version None)
Quarter: 2008Q2

REPORT INFORMATION
  Report Type: 
  Country: None (occurrence: None)
  Receive Date: 20080609
  Receipt Date: 20080526
  Transmission Date: 20081010
  Serious: No
  Sender: FDA-Public Use
  Company Number: BR-BOEHRINGER INGELHEIM GMBH, GERMANY-2008-BP-08103BR

PATIENT
  Age: 4 Year
  Sex: Male

DRUGS (4)
  1. ATROVENT [Suspect]
     Indication: BRONCHIOLITIS
     Route: 055
     Dates: start: 20080501
  2. BEROTEC [Suspect]
     Indication: BRONCHIOLITIS
     Route: 055
     Dates: start: 20080501
  3. ACEBROFILINA [Concomitant]
  4. DECADRON [Concomitant]

REACTIONS (2)
  - HEADACHE [None]
  - PULSE PRESSURE INCREASED [None]
